FAERS Safety Report 9419065 (Version 2)
Quarter: 2013Q3

REPORT INFORMATION
  Report Type: Spontaneous
  Country: MX (occurrence: MX)
  Receive Date: 20130725
  Receipt Date: 20130820
  Transmission Date: 20140515
  Serious: Yes (Hospitalization, Other)
  Sender: FDA-Public Use
  Company Number: PHHY2013MX078667

PATIENT
  Age: 54 Year
  Sex: Female

DRUGS (2)
  1. EXFORGE [Suspect]
     Indication: HYPERTENSION
     Dosage: 2 DF (160/5MG), DAILY
     Route: 048
     Dates: end: 201212
  2. EXFORGE [Suspect]
     Dosage: 320/10 MG, DAILY
     Route: 048
     Dates: start: 201212, end: 20130702

REACTIONS (5)
  - Arterial occlusive disease [Recovered/Resolved]
  - Blood pressure increased [Recovered/Resolved]
  - Peripheral vascular disorder [Recovered/Resolved]
  - Renal disorder [Recovered/Resolved]
  - Drug ineffective [Unknown]
